FAERS Safety Report 5113135-5 (Version None)
Quarter: 2006Q3

REPORT INFORMATION
  Report Type: 
  Country: None (occurrence: None)
  Receive Date: 20060920
  Receipt Date: 20060901
  Transmission Date: 20061208
  Serious: Yes (Hospitalization, Other)
  Sender: FDA-Public Use
  Company Number: US200608005912

PATIENT
  Age: 44 Year
  Sex: Female
  Weight: 120.2 kg

DRUGS (13)
  1. ZYPREXA [Suspect]
     Indication: DEPRESSION
     Dosage: 20 MG
     Dates: start: 20040101
  2. PROZAC [Concomitant]
  3. SEROQUEL [Concomitant]
  4. ANAFRANIL - SLOW RELEASE (CLOMIPRAMINE HYDROCHLORIDE) [Concomitant]
  5. DOXEPIN HCL [Concomitant]
  6. TOFRANIL-PM (IMIPRAMINE EMBONATE) [Concomitant]
  7. MIRTAZAPINE [Concomitant]
  8. SERZONE [Concomitant]
  9. PAXIL [Concomitant]
  10. DEPO-PROVERA SUSPENSION/INJ [Concomitant]
  11. LUNELLE (ESTRADIOL CIPIONATE, MEDROXYPROGESTERONE ACETATE) [Concomitant]
  12. PROGESTOGENS AND ESTROGENS IN COMBINATION [Concomitant]
  13. PROGESTOGENS [Concomitant]

REACTIONS (8)
  - ANGIOPLASTY [None]
  - BLOOD TRIGLYCERIDES INCREASED [None]
  - DIABETES MELLITUS [None]
  - DIABETIC KETOACIDOSIS [None]
  - HYPERINSULINISM [None]
  - HYPERTENSION [None]
  - METABOLIC DISORDER [None]
  - OBESITY [None]
